FAERS Safety Report 5872602-7 (Version None)
Quarter: 2008Q3

REPORT INFORMATION
  Report Type: 
  Country: None (occurrence: None)
  Receive Date: 20080905
  Receipt Date: 20080825
  Transmission Date: 20090109
  Serious: Yes (Hospitalization)
  Sender: FDA-Public Use
  Company Number: BE-ROCHE-583708

PATIENT
  Age: 60 Year
  Sex: Male

DRUGS (6)
  1. CLONAZEPAM [Suspect]
     Route: 065
  2. AMITRIPTYLINE HCL [Interacting]
     Route: 065
  3. DEXTROMETHORPHAN [Interacting]
     Route: 065
  4. DEXTROMETHORPHAN [Interacting]
     Route: 065
  5. HYDROMORPHONE HCL [Concomitant]
  6. GABAPENTIN [Concomitant]

REACTIONS (2)
  - COMA [None]
  - DRUG INTERACTION [None]
